FAERS Safety Report 7384386-4 (Version None)
Quarter: 2011Q1

REPORT INFORMATION
  Report Type: 
  Country: None (occurrence: None)
  Receive Date: 20110330
  Receipt Date: 20110321
  Transmission Date: 20110831
  Serious: Yes (Other)
  Sender: FDA-Public Use
  Company Number: FR-ASTRAZENECA-2011SE17046

PATIENT
  Age: 15635 Day
  Sex: Female

DRUGS (6)
  1. NAROPIN [Suspect]
     Indication: ANAESTHESIA
     Dosage: ONCE/SINGLE ADMINISTRATION
     Route: 053
     Dates: start: 20100712, end: 20100712
  2. XANAX [Suspect]
     Indication: INDUCTION OF ANAESTHESIA
     Dosage: ONCE/SINGLE ADMINISTRATION
     Route: 048
     Dates: start: 20100712, end: 20100712
  3. AVLOCARDYL [Concomitant]
  4. UN-ALPHA [Concomitant]
  5. CARBOCAINE [Suspect]
     Indication: ANAESTHESIA
     Route: 053
     Dates: start: 20100712, end: 20100712
  6. LEVOTHYROX [Concomitant]

REACTIONS (3)
  - TACHYCARDIA [None]
  - MALAISE [None]
  - DYSPNOEA [None]
